FAERS Safety Report 8613325-0 (Version None)
Quarter: 2012Q3

REPORT INFORMATION
  Report Type: 
  Country: None (occurrence: None)
  Receive Date: 20120822
  Receipt Date: 20120806
  Transmission Date: 20120928
  Serious: Yes (Other)
  Sender: FDA-Public Use
  Company Number: US-009507513-1208USA003181

PATIENT

DRUGS (5)
  1. METFORMIN [Concomitant]
  2. TELAPREVIR [Suspect]
  3. PEG-INTRON [Suspect]
     Indication: HEPATITIS C
     Dosage: 120 MICROGRAM, QW
     Route: 058
     Dates: start: 20120101
  4. RIBASPHERE [Suspect]
  5. ASPIRIN [Concomitant]

REACTIONS (4)
  - ANAEMIA [None]
  - NEPHROLITHIASIS [None]
  - URINARY BLADDER HAEMORRHAGE [None]
  - RASH [None]
